FAERS Safety Report 8329729-X (Version None)
Quarter: 2012Q2

REPORT INFORMATION
  Report Type: 
  Country: None (occurrence: None)
  Receive Date: 20120502
  Receipt Date: 20120113
  Transmission Date: 20120825
  Serious: Yes (Hospitalization)
  Sender: FDA-Public Use
  Company Number: IN-GLAXOSMITHKLINE-Z0008035B

PATIENT
  Sex: Female
  Weight: 34 kg

DRUGS (1)
  1. ELTROMBOPAG [Suspect]
     Indication: IDIOPATHIC THROMBOCYTOPENIC PURPURA
     Route: 048
     Dates: start: 20100930

REACTIONS (3)
  - TOOTH ABSCESS [None]
  - HAEMATOMA [None]
  - THROMBOCYTOPENIA [None]
